FAERS Safety Report 9606642 (Version 1)
Quarter: 2013Q4

REPORT INFORMATION
  Report Type: Spontaneous
  Country: US (occurrence: US)
  Receive Date: 20131008
  Receipt Date: 20131008
  Transmission Date: 20140711
  Serious: No
  Sender: FDA-Public Use
  Company Number: US-AMGEN-USASP2013058446

PATIENT
  Sex: Female

DRUGS (3)
  1. PROLIA [Suspect]
     Indication: OSTEOPOROSIS POSTMENOPAUSAL
     Dosage: UNK
     Route: 065
     Dates: start: 20130110
  2. PERCOCET                           /00446701/ [Concomitant]
  3. MORPHINE [Concomitant]

REACTIONS (3)
  - Back pain [Recovering/Resolving]
  - Bursitis [Unknown]
  - Arthralgia [Not Recovered/Not Resolved]
